FAERS Safety Report 15966666 (Version 1)
Quarter: 2019Q1

REPORT INFORMATION
  Report Type: Spontaneous
  Country: US (occurrence: US)
  Receive Date: 20190215
  Receipt Date: 20190215
  Transmission Date: 20190418
  Serious: Yes (Other)
  Sender: FDA-Public Use
  Company Number: US-EMD SERONO-9071318

PATIENT
  Sex: Male

DRUGS (1)
  1. REBIF [Suspect]
     Active Substance: INTERFERON BETA-1A
     Indication: PRODUCT USED FOR UNKNOWN INDICATION

REACTIONS (7)
  - Vitamin D deficiency [Unknown]
  - Cervical spinal stenosis [Unknown]
  - Fatigue [Unknown]
  - Peroneal nerve palsy [Unknown]
  - Adverse drug reaction [Unknown]
  - Treatment failure [Unknown]
  - Muscle spasticity [Unknown]
